FAERS Safety Report 8619047-4 (Version None)
Quarter: 2012Q3

REPORT INFORMATION
  Report Type: 
  Country: None (occurrence: None)
  Receive Date: 20120824
  Receipt Date: 20120816
  Transmission Date: 20120928
  Serious: Yes (Hospitalization)
  Sender: FDA-Public Use
  Company Number: US-BAYER-2012-055867

PATIENT
  Age: 34 Year
  Sex: Female

DRUGS (6)
  1. DROSPIRENONE AND ETHINYL ESTRADIOL [Suspect]
     Dosage: UNK
     Dates: start: 20071101
  2. CLARITIN [Concomitant]
     Dosage: 10 MG, UNK
     Route: 048
  3. YAZ [Suspect]
     Dosage: UNK
     Dates: start: 20071101
  4. YASMIN [Suspect]
     Dosage: UNK
     Dates: start: 20071101
  5. ZOLOFT [Concomitant]
     Dosage: 100 MG, UNK
     Route: 048
  6. HYDROCODONE BITARTRATE + ACETAMINOPHEN [Concomitant]
     Dosage: 5/325
     Route: 048

REACTIONS (3)
  - PULMONARY EMBOLISM [None]
  - PAIN [None]
  - INJURY [None]
